FAERS Safety Report 10214600 (Version 1)
Quarter: 2014Q2

REPORT INFORMATION
  Report Type: Spontaneous
  Country: MY (occurrence: MY)
  Receive Date: 20140603
  Receipt Date: 20140603
  Transmission Date: 20141212
  Serious: Yes (Life-Threatening)
  Sender: FDA-Public Use
  Company Number: MY-BRISTOL-MYERS SQUIBB COMPANY-20855870

PATIENT
  Sex: Male

DRUGS (2)
  1. FORXIGA [Suspect]
     Route: 048
  2. DIAMICRON [Concomitant]
     Dosage: DIAMICRON MR

REACTIONS (1)
  - Acute myocardial infarction [Unknown]
